FAERS Safety Report 4497180-9 (Version None)
Quarter: 2004Q4

REPORT INFORMATION
  Report Type: 
  Country: None (occurrence: None)
  Receive Date: 20041105
  Receipt Date: 20041022
  Transmission Date: 20050328
  Serious: Yes (Death)
  Sender: FDA-Public Use
  Company Number: 2004S1002924

PATIENT
  Age: 43 Year
  Sex: Female

DRUGS (3)
  1. CLOZAPINE [Suspect]
     Dosage: 200MG/DAY, ORAL
     Route: 048
  2. BUPROPION HCL [Concomitant]
  3. LAMOTRIGINE [Concomitant]

REACTIONS (3)
  - COMPLETED SUICIDE [None]
  - PSYCHOTIC DISORDER [None]
  - SOCIAL AVOIDANT BEHAVIOUR [None]
